FAERS Safety Report 6111577-2 (Version None)
Quarter: 2009Q1

REPORT INFORMATION
  Report Type: 
  Country: None (occurrence: None)
  Receive Date: 20090310
  Receipt Date: 20090310
  Transmission Date: 20090719
  Serious: Yes (Hospitalization)
  Sender: FDA-Public Use
  Company Number: None

PATIENT
  Sex: Female
  Weight: 77 kg

DRUGS (2)
  1. FLUDARABINE PHOSPHATE [Suspect]
     Indication: BONE MARROW CONDITIONING REGIMEN
     Dosage: 57 MG DAILY IV DRIP
     Route: 041
     Dates: start: 20081224, end: 20081228
  2. MELPHALAN [Suspect]
     Dosage: 133MG DAILY IV DRIP
     Route: 041
     Dates: start: 20081228, end: 20081229

REACTIONS (3)
  - DYSPNOEA [None]
  - PYREXIA [None]
  - RESPIRATORY DISORDER [None]
